FAERS Safety Report 5896404-0 (Version None)
Quarter: 2008Q3

REPORT INFORMATION
  Report Type: 
  Country: None (occurrence: None)
  Receive Date: 20080924
  Receipt Date: 20070510
  Transmission Date: 20090109
  Serious: No
  Sender: FDA-Public Use
  Company Number: US-BAYER-200711480BWH

PATIENT
  Age: 72 Year
  Sex: Male

DRUGS (8)
  1. AVELOX [Suspect]
     Indication: INFECTION PROPHYLAXIS
     Route: 048
     Dates: start: 20070430
  2. ASPIRIN [Concomitant]
  3. ATENOLOL [Concomitant]
  4. DIOVAN HCT [Concomitant]
  5. NEURONTIN [Concomitant]
  6. NORVASC [Concomitant]
  7. SPIRIVA [Concomitant]
  8. ZOCOR [Concomitant]

REACTIONS (2)
  - FATIGUE [None]
  - INSOMNIA [None]
